FAERS Safety Report 4401435-3 (Version None)
Quarter: 2004Q3

REPORT INFORMATION
  Report Type: 
  Country: None (occurrence: None)
  Receive Date: 20040907
  Receipt Date: 20040504
  Transmission Date: 20050211
  Serious: No
  Sender: FDA-Public Use
  Company Number: US-BRISTOL-MYERS SQUIBB COMPANY-12579041

PATIENT
  Age: 74 Year
  Sex: Female
  Weight: 82 kg

DRUGS (10)
  1. COUMADIN [Suspect]
     Indication: ATRIAL FIBRILLATION
     Dosage: DOSAGE: 3MG AND 4.5MG ALTERNATING DAILY
     Route: 048
     Dates: start: 20040201
  2. COUMADIN [Suspect]
     Indication: THROMBOSIS
     Dosage: DOSAGE: 3MG AND 4.5MG ALTERNATING DAILY
     Route: 048
     Dates: start: 20040201
  3. ALTACE [Concomitant]
  4. PREVACID [Concomitant]
  5. TIKOSYN [Concomitant]
  6. FUROSEMIDE [Concomitant]
  7. POTASSIUM [Concomitant]
  8. ECOTRIN [Concomitant]
  9. MULTI-VITAMIN [Concomitant]
  10. VITAMIN C [Concomitant]

REACTIONS (1)
  - CONTUSION [None]
